FAERS Safety Report 5220079-7 (Version None)
Quarter: 2007Q1

REPORT INFORMATION
  Report Type: 
  Country: None (occurrence: None)
  Receive Date: 20070124
  Receipt Date: 20070124
  Transmission Date: 20070707
  Serious: Yes (Other)
  Sender: FDA-Public Use
  Company Number: None

PATIENT
  Age: 82 Year
  Sex: Male
  Weight: 74.8435 kg

DRUGS (12)
  1. BRIMONIDINE TARTRATE [Suspect]
     Indication: GLAUCOMA
     Dosage: 1 DROP OU TID
     Route: 050
     Dates: start: 20020801, end: 20060701
  2. ARTIFICIAL TEARS POLYVINYL ALCOHOL [Concomitant]
  3. BRIMONIDINE TARTRATE [Concomitant]
  4. DORZOLAMIDE/TIMOLOL [Concomitant]
  5. FELODIPINE [Concomitant]
  6. HYDROCHLOROTHIAZIDE [Concomitant]
  7. NAPHAZOLINE HCL [Concomitant]
  8. RANITIDINE HCL [Concomitant]
  9. SENNOSIDES [Concomitant]
  10. SIMVASTATIN [Concomitant]
  11. TRAVOPROST [Concomitant]
  12. VARDENAFIL [Concomitant]

REACTIONS (1)
  - DERMATITIS [None]
